FAERS Safety Report 9705981 (Version 1)
Quarter: 2013Q4

REPORT INFORMATION
  Report Type: Report from Study
  Country: DE (occurrence: DE)
  Receive Date: 20131122
  Receipt Date: 20131122
  Transmission Date: 20140711
  Serious: Yes (Death)
  Sender: FDA-Public Use
  Company Number: DE-ABBVIE-13P-062-1172620-00

PATIENT
  Age: 80 Year
  Sex: Male

DRUGS (1)
  1. LEUPRORELIN DEPOT [Suspect]
     Indication: PROSTATE CANCER
     Route: 058
     Dates: start: 20120607, end: 20130911

REACTIONS (1)
  - Death [Fatal]
